FAERS Safety Report 9736633 (Version 3)
Quarter: 2013Q4

REPORT INFORMATION
  Report Type: Spontaneous
  Country: US (occurrence: US)
  Receive Date: 20131206
  Receipt Date: 20131211
  Transmission Date: 20140711
  Serious: Yes (Hospitalization)
  Sender: FDA-Public Use
  Company Number: US-PFIZER INC-2013340908

PATIENT
  Age: 69 Year
  Sex: Female
  Weight: 81.6 kg

DRUGS (1)
  1. LEVOXYL [Suspect]
     Indication: HYPOTHYROIDISM
     Dosage: UNK

REACTIONS (2)
  - Cerebral haemorrhage [Unknown]
  - Intracranial haematoma [Unknown]
